FAERS Safety Report 10161201 (Version 1)
Quarter: 2014Q2

REPORT INFORMATION
  Report Type: Spontaneous
  Country: US (occurrence: US)
  Receive Date: 20140508
  Receipt Date: 20140508
  Transmission Date: 20141212
  Serious: Yes (Other)
  Sender: FDA-Public Use
  Company Number: US-RB-066860-14

PATIENT
  Age: 0 Year
  Sex: Female

DRUGS (4)
  1. BUPRENORPHINE GENERIC [Suspect]
     Indication: DRUG DEPENDENCE
     Dosage: MOTHER WAS TAKING ONE AND A HALF TABLET DAILY
     Route: 064
     Dates: start: 20130618, end: 20140124
  2. EFFEXOR [Concomitant]
     Indication: OBSESSIVE-COMPULSIVE DISORDER
     Route: 064
     Dates: start: 201305, end: 20140124
  3. SERAX [Concomitant]
     Indication: ANXIETY
     Route: 064
     Dates: start: 201305, end: 20140124
  4. ZANTAC [Concomitant]
     Indication: DYSPEPSIA
     Dosage: DOSING DETAILS UNKNOWN
     Route: 064
     Dates: start: 201309, end: 20140124

REACTIONS (2)
  - Foetal exposure during pregnancy [Recovered/Resolved]
  - Premature baby [Recovered/Resolved]
